FAERS Safety Report 17676024 (Version 1)
Quarter: 2020Q2

REPORT INFORMATION
  Report Type: Spontaneous
  Country: US (occurrence: US)
  Receive Date: 20200416
  Receipt Date: 20200416
  Transmission Date: 20200714
  Serious: Yes (Hospitalization)
  Sender: FDA-Public Use
  Company Number: None

PATIENT
  Sex: Male

DRUGS (9)
  1. TADALAFIL. [Concomitant]
     Active Substance: TADALAFIL
  2. WARFARIN [Concomitant]
     Active Substance: WARFARIN
  3. AMBRISENTAN [Suspect]
     Active Substance: AMBRISENTAN
     Indication: PULMONARY ARTERIAL HYPERTENSION
     Dosage: ?          OTHER FREQUENCY:UNK;?
     Route: 065
  4. BUDES/FORMOT [Concomitant]
  5. BUMETANIDE. [Concomitant]
     Active Substance: BUMETANIDE
  6. SPIRONOLACT [Concomitant]
     Active Substance: SPIRONOLACTONE
  7. ECONAZOLE. [Concomitant]
     Active Substance: ECONAZOLE NITRATE
  8. COLCHICINE. [Concomitant]
     Active Substance: COLCHICINE
  9. AZELAIC ACID. [Concomitant]
     Active Substance: AZELAIC ACID

REACTIONS (3)
  - Therapy interrupted [None]
  - Insurance issue [None]
  - Arrhythmia [None]
